FAERS Safety Report 21915417 (Version 2)
Quarter: 2023Q1

REPORT INFORMATION
  Report Type: Report from Study
  Country: KR (occurrence: KR)
  Receive Date: 20230126
  Receipt Date: 20230329
  Transmission Date: 20230418
  Serious: Yes (Hospitalization)
  Sender: FDA-Public Use
  Company Number: KR-MYLANLABS-2023M1005528

PATIENT
  Age: 67 Year
  Sex: Female
  Weight: 45.7 kg

DRUGS (46)
  1. XANAX [Interacting]
     Active Substance: ALPRAZOLAM
     Indication: Ill-defined disorder
     Dosage: 0.5 MILLIGRAM, QD
     Route: 048
     Dates: start: 20180813
  2. CELEBREX [Interacting]
     Active Substance: CELECOXIB
     Indication: Ill-defined disorder
     Dosage: 200 MILLIGRAM, BID
     Route: 048
     Dates: start: 20180807, end: 20180807
  3. PREGABALIN [Interacting]
     Active Substance: PREGABALIN
     Indication: Ill-defined disorder
     Dosage: 75 MILLIGRAM, TID
     Route: 048
     Dates: start: 20180811, end: 20180811
  4. PREGABALIN [Interacting]
     Active Substance: PREGABALIN
     Dosage: 150 MILLIGRAM, TID
     Route: 048
     Dates: start: 20180812, end: 20181007
  5. ACETAMINOPHEN\TRAMADOL [Interacting]
     Active Substance: ACETAMINOPHEN\TRAMADOL
     Indication: Ill-defined disorder
     Dosage: 1 DOSAGE FORM, QD
     Route: 048
     Dates: start: 20180309, end: 20180309
  6. ACETAMINOPHEN\TRAMADOL [Interacting]
     Active Substance: ACETAMINOPHEN\TRAMADOL
     Dosage: 1 DOSAGE FORM, QD
     Route: 048
     Dates: start: 20180813, end: 20180912
  7. ALPRAZOLAM [Suspect]
     Active Substance: ALPRAZOLAM
     Indication: Ill-defined disorder
     Dosage: 0.5 MILLIGRAM, QD
     Route: 048
     Dates: start: 20180813
  8. POTASSIUM CHLORIDE [Interacting]
     Active Substance: POTASSIUM CHLORIDE
     Indication: Ill-defined disorder
     Dosage: 20 MILLIGRAM, QD
     Route: 042
     Dates: start: 20180810, end: 20180810
  9. POTASSIUM CHLORIDE [Interacting]
     Active Substance: POTASSIUM CHLORIDE
     Dosage: 20 MILLILITER, QD
     Route: 042
     Dates: start: 20180810, end: 20180810
  10. DIAZEPAM [Interacting]
     Active Substance: DIAZEPAM
     Indication: Ill-defined disorder
     Dosage: 5 MILLIGRAM, QD
     Route: 048
     Dates: start: 20180810, end: 20180811
  11. FLUOXETINE HYDROCHLORIDE [Interacting]
     Active Substance: FLUOXETINE HYDROCHLORIDE
     Indication: Ill-defined disorder
     Dosage: 10 MILLIGRAM, QD
     Route: 065
     Dates: start: 20180812, end: 20190324
  12. TRAMADOL HYDROCHLORIDE [Interacting]
     Active Substance: TRAMADOL HYDROCHLORIDE
     Indication: Ill-defined disorder
     Dosage: 50 MILLIGRAM, BID
     Route: 042
     Dates: start: 20180809, end: 20180810
  13. ZOLPIDEM TARTRATE [Interacting]
     Active Substance: ZOLPIDEM TARTRATE
     Indication: Ill-defined disorder
     Dosage: 6.25 MILLIGRAM, QD
     Route: 048
     Dates: start: 20180808, end: 20180808
  14. ZOLPIDEM TARTRATE [Interacting]
     Active Substance: ZOLPIDEM TARTRATE
     Dosage: 6.25 MILLIGRAM, QD
     Route: 048
     Dates: start: 20180812, end: 20190127
  15. UBIDECARENONE [Concomitant]
     Active Substance: UBIDECARENONE
     Indication: Ill-defined disorder
     Dosage: 10 MILLIGRAM, BID
     Route: 048
  16. METHYLCOBALAMIN [Concomitant]
     Active Substance: METHYLCOBALAMIN
     Indication: Hypovitaminosis
     Dosage: 1000
     Route: 048
     Dates: end: 20181007
  17. CLONAZEPAM [Concomitant]
     Active Substance: CLONAZEPAM
     Indication: Ill-defined disorder
     Dosage: 0.25 MILLIGRAM, QD
     Route: 048
     Dates: end: 20180402
  18. CLONAZEPAM [Concomitant]
     Active Substance: CLONAZEPAM
     Dosage: 0.5 MILLIGRAM, QD
     Route: 048
     Dates: start: 20180403
  19. BACLOFEN [Concomitant]
     Active Substance: BACLOFEN
     Indication: Ill-defined disorder
     Dosage: 20 MILLIGRAM, BID
     Route: 048
     Dates: start: 20180413
  20. ERDOSTEINE [Concomitant]
     Active Substance: ERDOSTEINE
     Indication: Ill-defined disorder
     Dosage: 600 MILLIGRAM
     Route: 048
     Dates: start: 20190128
  21. ERDOSTEINE [Concomitant]
     Active Substance: ERDOSTEINE
     Dosage: 600 MILLIGRAM, BID
     Route: 048
     Dates: start: 20190128
  22. LIDOCAINE\PRILOCAINE [Concomitant]
     Active Substance: LIDOCAINE\PRILOCAINE
     Indication: Ill-defined disorder
     Dosage: UNK
     Route: 061
     Dates: end: 20180308
  23. LIDOCAINE\PRILOCAINE [Concomitant]
     Active Substance: LIDOCAINE\PRILOCAINE
     Dosage: UNK, 1 DAY
     Route: 061
     Dates: start: 20180402, end: 20180403
  24. LIDOCAINE\PRILOCAINE [Concomitant]
     Active Substance: LIDOCAINE\PRILOCAINE
     Dosage: UNK, QD
     Route: 061
     Dates: start: 20180308
  25. LEVOTHYROXINE SODIUM [Concomitant]
     Active Substance: LEVOTHYROXINE SODIUM
     Indication: Ill-defined disorder
     Dosage: 0.05 MILLIGRAM, QD
     Route: 048
     Dates: end: 20181007
  26. LACTULOSE [Concomitant]
     Active Substance: LACTULOSE
     Indication: Ill-defined disorder
     Dosage: 15 MILLILITER, QD
     Route: 048
     Dates: start: 20180309, end: 20180331
  27. ACETAMINOPHEN\TRAMADOL HYDROCHLORIDE [Concomitant]
     Active Substance: ACETAMINOPHEN\TRAMADOL HYDROCHLORIDE
     Indication: Ill-defined disorder
     Dosage: 1 DOSAGE FORM, QD
     Route: 048
     Dates: end: 20180308
  28. ACETAMINOPHEN\TRAMADOL HYDROCHLORIDE [Concomitant]
     Active Substance: ACETAMINOPHEN\TRAMADOL HYDROCHLORIDE
     Dosage: 1 DOSAGE FORM, QD
     Route: 048
     Dates: start: 20180402, end: 20180403
  29. ACETAMINOPHEN\TRAMADOL HYDROCHLORIDE [Concomitant]
     Active Substance: ACETAMINOPHEN\TRAMADOL HYDROCHLORIDE
     Dosage: 1 DOSAGE FORM, QD
     Route: 048
     Dates: start: 20180309, end: 20180309
  30. ACETAMINOPHEN\TRAMADOL HYDROCHLORIDE [Concomitant]
     Active Substance: ACETAMINOPHEN\TRAMADOL HYDROCHLORIDE
     Dosage: 1 DOSAGE FORM, QD
     Route: 048
     Dates: start: 20180813, end: 20180813
  31. TRAMADOL HYDROCHLORIDE [Concomitant]
     Active Substance: TRAMADOL HYDROCHLORIDE
     Indication: Ill-defined disorder
     Dosage: UNK, 50 MILLIGRAM
     Route: 048
     Dates: start: 20180403, end: 20180403
  32. TRAMADOL HYDROCHLORIDE [Concomitant]
     Active Substance: TRAMADOL HYDROCHLORIDE
     Dosage: 50 MILLIGRAM, BID
     Route: 048
     Dates: start: 20180403, end: 20180403
  33. MEGESTROL ACETATE [Concomitant]
     Active Substance: MEGESTROL ACETATE
     Indication: Ill-defined disorder
     Dosage: 20 MILLILITER
     Route: 048
     Dates: start: 20180504, end: 20180513
  34. MEGESTROL ACETATE [Concomitant]
     Active Substance: MEGESTROL ACETATE
     Dosage: 20 MILLILITER
     Route: 048
     Dates: start: 20180706, end: 20180811
  35. MEGESTROL ACETATE [Concomitant]
     Active Substance: MEGESTROL ACETATE
     Dosage: 20 MILLILITER, BID
     Route: 048
     Dates: start: 20180504, end: 20180513
  36. MIDAZOLAM [Concomitant]
     Active Substance: MIDAZOLAM
     Indication: Ill-defined disorder
     Dosage: 1 MILLIGRAM, QD
     Route: 042
     Dates: start: 20180809, end: 20180809
  37. MEPERIDINE HYDROCHLORIDE [Concomitant]
     Active Substance: MEPERIDINE HYDROCHLORIDE
     Indication: Ill-defined disorder
     Dosage: 25 MILLIGRAM, QD
     Route: 042
     Dates: start: 20180809, end: 20180809
  38. FAMOTIDINE [Concomitant]
     Active Substance: FAMOTIDINE
     Indication: Ill-defined disorder
     Dosage: 40 MILLIGRAM
     Route: 048
     Dates: start: 20180809, end: 20180812
  39. FAMOTIDINE [Concomitant]
     Active Substance: FAMOTIDINE
     Dosage: 40 MILLIGRAM, BID
     Route: 048
     Dates: start: 20180809, end: 20180812
  40. XANAX [Concomitant]
     Active Substance: ALPRAZOLAM
     Indication: Ill-defined disorder
     Dosage: 0.25 MILLIGRAM, QD
     Route: 048
     Dates: end: 20180812
  41. ALPRAZOLAM [Concomitant]
     Active Substance: ALPRAZOLAM
     Indication: Ill-defined disorder
     Dosage: 0.25 MILLIGRAM, QD
     Route: 048
     Dates: end: 20180812
  42. TOCOPHEROL ACETATE [Concomitant]
     Active Substance: .ALPHA.-TOCOPHEROL ACETATE
     Indication: Hypovitaminosis
     Dosage: 200 MILLIGRAM, BID
     Route: 048
     Dates: end: 20180809
  43. Ascorbic acid granulate [Concomitant]
     Indication: Vitamin C deficiency
     Dosage: 2 GRAM, BID
     Route: 048
     Dates: end: 20181007
  44. IBUPROFEN ARGININE [Concomitant]
     Active Substance: IBUPROFEN ARGININE
     Indication: Ill-defined disorder
     Dosage: 1 DOSAGE FORM, QD
     Route: 048
     Dates: end: 20180315
  45. IBUPROFEN ARGININE [Concomitant]
     Active Substance: IBUPROFEN ARGININE
     Dosage: 1 DOSAGE FORM, QD
     Route: 048
     Dates: start: 20180402, end: 20180413
  46. CEFTRIAXONE SODIUM [Concomitant]
     Active Substance: CEFTRIAXONE SODIUM
     Indication: Ill-defined disorder
     Dosage: 2 GRAM, QD
     Route: 042
     Dates: start: 20180809, end: 20180809

REACTIONS (2)
  - Dyspnoea [Recovered/Resolved]
  - Drug interaction [Unknown]

NARRATIVE: CASE EVENT DATE: 20190524
